FAERS Safety Report 8121990-X (Version None)
Quarter: 2012Q1

REPORT INFORMATION
  Report Type: 
  Country: None (occurrence: None)
  Receive Date: 20120208
  Receipt Date: 20120204
  Transmission Date: 20120608
  Serious: Yes (Death)
  Sender: FDA-Public Use
  Company Number: DE-ROCHE-1037228

PATIENT
  Sex: Female
  Weight: 58 kg

DRUGS (8)
  1. ENALAPRIL MALEATE [Suspect]
     Indication: PRODUCT USED FOR UNKNOWN INDICATION
  2. MIRCERA [Suspect]
     Indication: ANAEMIA
     Route: 058
     Dates: start: 20111222, end: 20120106
  3. LEVOTHYROXINE SODIUM [Concomitant]
  4. CALCIUM POLYSTYRENE SULFONATE [Suspect]
     Indication: PRODUCT USED FOR UNKNOWN INDICATION
  5. TORSEMIDE [Suspect]
     Indication: PRODUCT USED FOR UNKNOWN INDICATION
  6. COLECALCIFEROL [Concomitant]
  7. ZOPICLON [Concomitant]
  8. INSULIN [Concomitant]

REACTIONS (1)
  - ACUTE MYOCARDIAL INFARCTION [None]
